FAERS Safety Report 26172278 (Version 1)
Quarter: 2025Q4

REPORT INFORMATION
  Report Type: Spontaneous
  Country: US (occurrence: US)
  Receive Date: 20251218
  Receipt Date: 20251218
  Transmission Date: 20260118
  Serious: No
  Sender: ROCHE
  Company Number: US-ROCHE-10000458554

PATIENT
  Sex: Female

DRUGS (1)
  1. ACTEMRA ACTPEN [Suspect]
     Active Substance: TOCILIZUMAB
     Indication: Rheumatoid arthritis
     Dosage: 162 MG SC ONCE A WEEK VIA AUTO-INJECTOR
     Route: 058
     Dates: start: 202511

REACTIONS (2)
  - Joint swelling [Unknown]
  - Arthralgia [Unknown]
